FAERS Safety Report 15269753 (Version 1)
Quarter: 2018Q3

REPORT INFORMATION
  Report Type: Spontaneous
  Country: US (occurrence: US)
  Receive Date: 20180813
  Receipt Date: 20180813
  Transmission Date: 20181010
  Serious: Yes (Other)
  Sender: FDA-Public Use
  Company Number: US-STRIDES ARCOLAB LIMITED-2018SP004881

PATIENT

DRUGS (5)
  1. FLUDARABINE                        /01004602/ [Concomitant]
     Active Substance: FLUDARABINE PHOSPHATE
     Indication: MYELODYSPLASTIC SYNDROME
     Dosage: UNK, UNKNOWN
     Route: 065
  2. BUSULFAN ACCORD [Concomitant]
     Indication: MYELODYSPLASTIC SYNDROME
     Dosage: UNK, UNKNOWN
     Route: 065
  3. TACROLIMUS. [Suspect]
     Active Substance: TACROLIMUS
     Indication: STEM CELL TRANSPLANT
     Dosage: UNK
     Route: 065
  4. SIROLIMUS. [Suspect]
     Active Substance: SIROLIMUS
     Indication: STEM CELL TRANSPLANT
     Dosage: UNK, UNKNOWN
     Route: 065
  5. AZACITIDINE. [Concomitant]
     Active Substance: AZACITIDINE
     Indication: MYELODYSPLASTIC SYNDROME
     Dosage: UNKNOWN
     Route: 065

REACTIONS (6)
  - Dermatitis exfoliative generalised [Recovered/Resolved]
  - Dermatitis [Recovered/Resolved]
  - Off label use [Unknown]
  - Rash pruritic [Recovered/Resolved]
  - Minimal residual disease [Unknown]
  - Mycosis fungoides [Recovered/Resolved]
